FAERS Safety Report 13777788 (Version 3)
Quarter: 2017Q3

REPORT INFORMATION
  Report Type: Spontaneous
  Country: US (occurrence: US)
  Receive Date: 20170721
  Receipt Date: 20170817
  Transmission Date: 20171127
  Serious: Yes (Hospitalization, Other)
  Sender: FDA-Public Use
  Company Number: US-AMGEN-USASP2017108289

PATIENT
  Sex: Female
  Weight: 56.25 kg

DRUGS (3)
  1. ENBREL [Suspect]
     Active Substance: ETANERCEPT
     Indication: RHEUMATOID ARTHRITIS
     Dosage: UNK
     Route: 065
  2. METHOTREXATE. [Concomitant]
     Active Substance: METHOTREXATE
     Indication: RHEUMATOID ARTHRITIS
     Dosage: 250 MG, QWK
     Route: 058
  3. XELJANZ [Suspect]
     Active Substance: TOFACITINIB CITRATE
     Indication: RHEUMATOID ARTHRITIS
     Dosage: 11 MG, QD
     Route: 048
     Dates: start: 201706, end: 201706

REACTIONS (10)
  - Dumping syndrome [Unknown]
  - Chest discomfort [Unknown]
  - Atrial fibrillation [Unknown]
  - Hernia hiatus repair [Unknown]
  - Rheumatoid arthritis [Unknown]
  - Pneumonia [Unknown]
  - Nausea [Unknown]
  - Impaired gastric emptying [Unknown]
  - Diarrhoea [Unknown]
  - Pulmonary sarcoidosis [Unknown]

NARRATIVE: CASE EVENT DATE: 2015
